FAERS Safety Report 7424414-0 (Version None)
Quarter: 2011Q2

REPORT INFORMATION
  Report Type: 
  Country: None (occurrence: None)
  Receive Date: 20110411
  Receipt Date: 20110326
  Transmission Date: 20111010
  Serious: Yes (Other)
  Sender: FDA-Public Use
  Company Number: 2011AP000556

PATIENT
  Age: 20 Year
  Sex: Male

DRUGS (5)
  1. TACROLIMUS [Suspect]
     Indication: IMMUNOSUPPRESSION
  2. ITRACONAZOLE [Suspect]
  3. GANCICLOVIR [Concomitant]
  4. COTRIM [Concomitant]
  5. MYCOPHENOLATE MOFETIL [Suspect]
     Indication: IMMUNOSUPPRESSION

REACTIONS (3)
  - NEUTROPHIL PELGER-HUET ANOMALY PRESENT [None]
  - BONE MARROW FAILURE [None]
  - DRUG TOLERANCE [None]
